FAERS Safety Report 7562166-4 (Version None)
Quarter: 2011Q2

REPORT INFORMATION
  Report Type: 
  Country: None (occurrence: None)
  Receive Date: 20110614
  Receipt Date: 20110606
  Transmission Date: 20111010
  Serious: Yes (Hospitalization, Other)
  Sender: FDA-Public Use
  Company Number: GB-001787

PATIENT
  Sex: Male
  Weight: 13 kg

DRUGS (5)
  1. NAGLAZYME [Suspect]
     Indication: MUCOPOLYSACCHARIDOSIS VI
     Dosage: 1MG/KG 1X/WEEK INTRAVENOUS DRIP
     Route: 041
     Dates: start: 20100707
  2. IBUPROFEN [Concomitant]
  3. ANTIHISTAMINES [Concomitant]
  4. OTHER ANALGESICS AND ANTIPYRETICS [Concomitant]
  5. ACETAMINOPHEN [Concomitant]

REACTIONS (2)
  - SPINAL COLUMN STENOSIS [None]
  - SPINAL CORD COMPRESSION [None]
